FAERS Safety Report 16675977 (Version 3)
Quarter: 2019Q4

REPORT INFORMATION
  Report Type: Report from Study
  Country: CL (occurrence: CL)
  Receive Date: 20190807
  Receipt Date: 20191023
  Transmission Date: 20200122
  Serious: Yes (Other)
  Sender: FDA-Public Use
  Company Number: CL-BEH-2019105144

PATIENT
  Age: 61 Year
  Sex: Female

DRUGS (6)
  1. BERINERT [Suspect]
     Active Substance: HUMAN C1-ESTERASE INHIBITOR
     Indication: HEREDITARY ANGIOEDEMA
     Dosage: 1500 INTERNATIONAL UNIT (3 VIALS PER CRISIS), PRN (REPORTED AS SOS)
     Route: 042
  2. BERINERT [Suspect]
     Active Substance: HUMAN C1-ESTERASE INHIBITOR
     Dosage: 1500 INTERNATIONAL UNIT, TOT
     Route: 042
     Dates: start: 20190722, end: 20190722
  3. BERINERT [Suspect]
     Active Substance: HUMAN C1-ESTERASE INHIBITOR
     Dosage: 1500 INTERNATIONAL UNIT, TOT
     Route: 042
     Dates: start: 20191002, end: 20191002
  4. BERINERT [Suspect]
     Active Substance: HUMAN C1-ESTERASE INHIBITOR
     Dosage: 1500 INTERNATIONAL UNIT, TOT
     Route: 042
     Dates: start: 20190722, end: 20190722
  5. BERINERT [Suspect]
     Active Substance: HUMAN C1-ESTERASE INHIBITOR
     Indication: HEREDITARY ANGIOEDEMA
     Dosage: 1500 INTERNATIONAL UNIT (3 VIALS PER CRISIS), PRN (REPORTED AS SOS)
     Route: 042
  6. BERINERT [Suspect]
     Active Substance: HUMAN C1-ESTERASE INHIBITOR
     Dosage: 1500 INTERNATIONAL UNIT, TOT
     Route: 042
     Dates: start: 20191002, end: 20191002

REACTIONS (3)
  - Helicobacter infection [Recovered/Resolved]
  - Duodenal ulcer [Not Recovered/Not Resolved]
  - Gastric ulcer [Not Recovered/Not Resolved]
